FAERS Safety Report 9193408 (Version 3)
Quarter: 2013Q2

REPORT INFORMATION
  Report Type: Spontaneous
  Country: US (occurrence: US)
  Receive Date: 20130327
  Receipt Date: 20130507
  Transmission Date: 20140414
  Serious: Yes (Other)
  Sender: FDA-Public Use
  Company Number: US-PFIZER INC-2013098152

PATIENT
  Age: 46 Year
  Sex: Female

DRUGS (5)
  1. ALDACTONE [Suspect]
     Dosage: UNK
  2. NEURONTIN [Suspect]
     Dosage: 600 MG, 4X/DAY
  3. LYRICA [Suspect]
     Dosage: 160 MG, 4X/DAY
  4. XANAX [Suspect]
     Dosage: UNK
  5. ALDACTAZIDE [Suspect]
     Dosage: UNK, 1 X DAY

REACTIONS (4)
  - Brain neoplasm [Unknown]
  - Uterine disorder [Unknown]
  - Menopause [Unknown]
  - Nausea [Unknown]
